FAERS Safety Report 21247683 (Version 1)
Quarter: 2022Q3

REPORT INFORMATION
  Report Type: Spontaneous
  Country: CN (occurrence: None)
  Receive Date: 20220824
  Receipt Date: 20220824
  Transmission Date: 20221027
  Serious: Yes (Other)
  Sender: FDA-Public Use
  Company Number: CN-ROCHE-3163721

PATIENT
  Age: 73 Year
  Sex: Male

DRUGS (26)
  1. MABTHERA [Suspect]
     Active Substance: RITUXIMAB
     Indication: Diffuse large B-cell lymphoma
     Route: 065
     Dates: start: 201905
  2. MABTHERA [Suspect]
     Active Substance: RITUXIMAB
     Route: 065
     Dates: start: 202004, end: 202009
  3. GAZYVA [Suspect]
     Active Substance: OBINUTUZUMAB
     Indication: Diffuse large B-cell lymphoma
     Dosage: /NOV/2021,/JAN/2022
     Route: 042
  4. CYCLOPHOSPHAMIDE [Concomitant]
     Active Substance: CYCLOPHOSPHAMIDE
     Indication: Diffuse large B-cell lymphoma
     Dates: start: 201904
  5. CYCLOPHOSPHAMIDE [Concomitant]
     Active Substance: CYCLOPHOSPHAMIDE
     Dates: start: 201905
  6. CYCLOPHOSPHAMIDE [Concomitant]
     Active Substance: CYCLOPHOSPHAMIDE
     Dates: start: 202004, end: 202009
  7. VINDESINE [Concomitant]
     Active Substance: VINDESINE
     Indication: Diffuse large B-cell lymphoma
     Dates: start: 201904
  8. VINDESINE [Concomitant]
     Active Substance: VINDESINE
     Dates: start: 201905
  9. VINDESINE [Concomitant]
     Active Substance: VINDESINE
     Dates: start: 202004, end: 202009
  10. PIRARUBICIN [Concomitant]
     Active Substance: PIRARUBICIN
     Indication: Diffuse large B-cell lymphoma
     Dosage: 35MG D1,20MG D2
     Dates: start: 201904
  11. PIRARUBICIN [Concomitant]
     Active Substance: PIRARUBICIN
     Dates: start: 201905
  12. PREDNISOLONE [Concomitant]
     Active Substance: PREDNISOLONE
     Indication: Diffuse large B-cell lymphoma
     Dates: start: 201904
  13. PREDNISOLONE [Concomitant]
     Active Substance: PREDNISOLONE
     Dates: start: 201905
  14. EPIRUBICIN [Concomitant]
     Active Substance: EPIRUBICIN
     Indication: Diffuse large B-cell lymphoma
     Dates: start: 202004, end: 202009
  15. PREDNISONE [Concomitant]
     Active Substance: PREDNISONE
     Indication: Diffuse large B-cell lymphoma
     Dates: start: 202004, end: 202009
  16. GEMCITABINE [Concomitant]
     Active Substance: GEMCITABINE
     Indication: Diffuse large B-cell lymphoma
  17. CISPLATIN [Concomitant]
     Active Substance: CISPLATIN
     Indication: Diffuse large B-cell lymphoma
  18. DEXAMETHASONE [Concomitant]
     Active Substance: DEXAMETHASONE
     Indication: Diffuse large B-cell lymphoma
  19. ZANUBRUTINIB [Concomitant]
     Active Substance: ZANUBRUTINIB
     Indication: Diffuse large B-cell lymphoma
     Route: 048
  20. IBRUTINIB [Concomitant]
     Active Substance: IBRUTINIB
     Indication: Diffuse large B-cell lymphoma
     Route: 048
  21. ORELABRUTINIB [Concomitant]
     Active Substance: ORELABRUTINIB
     Indication: Diffuse large B-cell lymphoma
  22. LENALIDOMIDE [Concomitant]
     Active Substance: LENALIDOMIDE
     Indication: Diffuse large B-cell lymphoma
  23. ASPIRIN [Concomitant]
     Active Substance: ASPIRIN
  24. ATORVASTATIN CALCIUM [Concomitant]
     Active Substance: ATORVASTATIN CALCIUM
     Route: 048
  25. RIVAROXABAN [Concomitant]
     Active Substance: RIVAROXABAN
  26. BERAPROST SODIUM [Concomitant]
     Active Substance: BERAPROST SODIUM
     Route: 048

REACTIONS (3)
  - Infected neoplasm [Unknown]
  - Diffuse large B-cell lymphoma recurrent [Unknown]
  - Off label use [Unknown]

NARRATIVE: CASE EVENT DATE: 20190501
